FAERS Safety Report 8820849 (Version 2)
Quarter: 2012Q4

REPORT INFORMATION
  Report Type: 
  Country: JP (occurrence: JP)
  Receive Date: 20121002
  Receipt Date: 20121012
  Transmission Date: 20130627
  Serious: Yes (Other)
  Sender: FDA-Public Use
  Company Number: JP-ROCHE-1132209

PATIENT
  Age: 73 Year
  Sex: Female
  Weight: 40 kg

DRUGS (13)
  1. MIRCERA [Suspect]
     Indication: NEPHROGENIC ANAEMIA
     Route: 042
     Dates: start: 20111203, end: 20111230
  2. MIRCERA [Suspect]
     Indication: NEPHROGENIC ANAEMIA
     Route: 042
     Dates: start: 20111231, end: 20120127
  3. MIRCERA [Suspect]
     Indication: NEPHROGENIC ANAEMIA
     Route: 042
     Dates: start: 20120128, end: 20120811
  4. MIRCERA [Suspect]
     Indication: NEPHROGENIC ANAEMIA
     Route: 042
     Dates: start: 20120812, end: 20120814
  5. MIRCERA [Suspect]
     Indication: NEPHROGENIC ANAEMIA
     Route: 042
     Dates: start: 20120815
  6. CALTAN [Concomitant]
     Route: 048
     Dates: start: 20080219
  7. PROMAC [Concomitant]
     Route: 048
     Dates: start: 20120605
  8. TAKEPRON [Concomitant]
     Route: 048
     Dates: start: 20100316
  9. ALFAROL [Concomitant]
     Route: 048
     Dates: start: 20080219
  10. SENNOSIDE [Concomitant]
     Route: 048
     Dates: start: 20080219
  11. HALFDIGOXIN KY [Concomitant]
     Indication: ATRIAL FIBRILLATION
     Route: 048
     Dates: start: 20080219
  12. MEVALOTIN [Concomitant]
     Route: 048
     Dates: start: 20120117
  13. WARFARIN [Concomitant]
     Indication: CEREBRAL INFARCTION
     Route: 048
     Dates: start: 20081009

REACTIONS (1)
  - Anaemia [Not Recovered/Not Resolved]
